FAERS Safety Report 4924969-1 (Version None)
Quarter: 2006Q1

REPORT INFORMATION
  Report Type: 
  Country: None (occurrence: None)
  Receive Date: 20060222
  Receipt Date: 20060109
  Transmission Date: 20060701
  Serious: Yes (Hospitalization)
  Sender: FDA-Public Use
  Company Number: PAR_0511_2006

PATIENT
  Age: 72 Year
  Sex: Female

DRUGS (5)
  1. VERAPAMIL [Suspect]
     Indication: ESSENTIAL HYPERTENSION
     Dosage: 180 MG QDAY PO
     Route: 048
     Dates: start: 20050722, end: 20050725
  2. CORDILOX [Suspect]
     Indication: ESSENTIAL HYPERTENSION
     Dosage: 180 MG QDAY
     Dates: start: 20040531
  3. BI PREDONIUM [Suspect]
     Indication: PROPHYLAXIS
     Dosage: 1 TAB QDAY PO
     Route: 048
     Dates: start: 20050117
  4. ZOCOR [Concomitant]
  5. ASPIRIN [Concomitant]

REACTIONS (5)
  - ACCIDENTAL OVERDOSE [None]
  - FALL [None]
  - HYPOKALAEMIA [None]
  - HYPOTENSION [None]
  - MEDICATION ERROR [None]
